FAERS Safety Report 7161035-1 (Version None)
Quarter: 2010Q4

REPORT INFORMATION
  Report Type: 
  Country: None (occurrence: None)
  Receive Date: 20101214
  Receipt Date: 20091202
  Transmission Date: 20110411
  Serious: No
  Sender: FDA-Public Use
  Company Number: US-AMGEN-KDL377973

PATIENT

DRUGS (4)
  1. ENBREL [Suspect]
     Indication: RHEUMATOID ARTHRITIS
     Dosage: 50 MG, QD
     Dates: start: 20091106, end: 20091130
  2. PREDNISONE [Concomitant]
     Dosage: 40 MG, QD
     Route: 048
  3. CORTISONE [Concomitant]
  4. HYDROCORTISONE [Concomitant]

REACTIONS (5)
  - INJECTION SITE ERYTHEMA [None]
  - INJECTION SITE PRURITUS [None]
  - INJECTION SITE URTICARIA [None]
  - PALMAR ERYTHEMA [None]
  - PRURITUS [None]
